FAERS Safety Report 16829198 (Version 1)
Quarter: 2019Q3

REPORT INFORMATION
  Report Type: Spontaneous
  Country: US (occurrence: US)
  Receive Date: 20190919
  Receipt Date: 20190919
  Transmission Date: 20191005
  Serious: No
  Sender: FDA-Public Use
  Company Number: US-AMERICAN REGENT INC-20182137

PATIENT
  Sex: Female

DRUGS (3)
  1. INJECTAFER [Suspect]
     Active Substance: FERRIC CARBOXYMALTOSE
     Indication: PRODUCT USED FOR UNKNOWN INDICATION
     Dosage: UNKNOWN (FIRST DOSE)
     Route: 042
  2. INJECTAFER [Suspect]
     Active Substance: FERRIC CARBOXYMALTOSE
     Dosage: UNKNOWN (SECOND DOSE)
     Route: 042
  3. HYPERTENSION MEDICATION [Concomitant]
     Active Substance: UNSPECIFIED INGREDIENT
     Indication: HYPERTENSION
     Dosage: UNKNOWN
     Route: 065

REACTIONS (3)
  - Pain [Unknown]
  - Hypertension [Unknown]
  - Anxiety [Unknown]
